FAERS Safety Report 9245105 (Version 2)
Quarter: 2013Q4

REPORT INFORMATION
  Report Type: Spontaneous
  Country: US (occurrence: None)
  Receive Date: 20121130
  Receipt Date: 20131226
  Transmission Date: 20140711
  Serious: Yes (Other)
  Sender: FDA-Public Use
  Company Number: PHEH2012US001213

PATIENT
  Age: 59 Year
  Sex: Male

DRUGS (2)
  1. TEKTURNA (ALISKIREN) [Suspect]
     Indication: HYPERTENSION
     Dosage: 150MG, UNK, ORAL
     Route: 048
     Dates: start: 201104
  2. HYDROCHLOROTHIAZIDE (HYDROCHLOROTHIAZIDE) [Suspect]
     Indication: HYPERTENSION
     Dosage: UNK

REACTIONS (1)
  - Blood pressure fluctuation [None]
